FAERS Safety Report 11359607 (Version 3)
Quarter: 2016Q3

REPORT INFORMATION
  Report Type: Spontaneous
  Country: US (occurrence: US)
  Receive Date: 20150807
  Receipt Date: 20160822
  Transmission Date: 20161109
  Serious: No
  Sender: FDA-Public Use
  Company Number: US-ASTRAZENECA-2015SE73801

PATIENT
  Age: 24225 Day
  Sex: Female

DRUGS (5)
  1. SYMBICORT [Suspect]
     Active Substance: BUDESONIDE\FORMOTEROL FUMARATE DIHYDRATE
     Indication: BRONCHIECTASIS
     Dosage: 160/4.5 2 PUFFS TWICE A DAY
     Route: 055
     Dates: end: 20160607
  2. OMEPRAZOLE. [Suspect]
     Active Substance: OMEPRAZOLE
     Dosage: 20 MG PO DAILY FOR 3 YEARS
     Route: 048
  3. SYMBICORT [Suspect]
     Active Substance: BUDESONIDE\FORMOTEROL FUMARATE DIHYDRATE
     Indication: CHRONIC OBSTRUCTIVE PULMONARY DISEASE
     Dosage: 160/4.5 2 PUFFS TWICE A DAY
     Route: 055
     Dates: end: 20160607
  4. VITAMIN D [Concomitant]
     Active Substance: CHOLECALCIFEROL
     Indication: SUPPLEMENTATION THERAPY
     Dosage: 1000 IU PO
     Route: 048
     Dates: end: 20160608
  5. OMEPRAZOLE. [Suspect]
     Active Substance: OMEPRAZOLE
     Dosage: 20 MG PO DAILY FOR 3 YEARS
     Route: 048
     Dates: start: 201603, end: 20160610

REACTIONS (5)
  - Rash pruritic [Unknown]
  - Intentional product use issue [Unknown]
  - Cough [Unknown]
  - Oral mucosal erythema [Unknown]
  - Product quality issue [Unknown]

NARRATIVE: CASE EVENT DATE: 20160320
